FAERS Safety Report 24773586 (Version 1)
Quarter: 2024Q4

REPORT INFORMATION
  Report Type: Spontaneous
  Country: BR (occurrence: BR)
  Receive Date: 20241225
  Receipt Date: 20241225
  Transmission Date: 20250114
  Serious: Yes (Other)
  Sender: NOVARTIS
  Company Number: BR-002147023-NVSC2024BR237277

PATIENT
  Sex: Female
  Weight: 74 kg

DRUGS (2)
  1. INCLISIRAN [Suspect]
     Active Substance: INCLISIRAN
     Indication: Product used for unknown indication
     Dosage: UNK (1ST DOSE)
     Route: 065
     Dates: start: 202404
  2. INCLISIRAN [Suspect]
     Active Substance: INCLISIRAN
     Dosage: UNK (2ND DOSE)
     Route: 065
     Dates: start: 202407

REACTIONS (1)
  - Respiratory failure [Unknown]
